FAERS Safety Report 4838060-6 (Version None)
Quarter: 2005Q4

REPORT INFORMATION
  Report Type: 
  Country: None (occurrence: None)
  Receive Date: 20051128
  Receipt Date: 20051114
  Transmission Date: 20060501
  Serious: Yes (Hospitalization, Other)
  Sender: FDA-Public Use
  Company Number: PHHO2005US17849

PATIENT
  Age: 64 Year
  Sex: Male

DRUGS (16)
  1. CYCLOSPORINE [Suspect]
     Indication: RENAL TRANSPLANT
     Dosage: 50 MG, BID
     Route: 048
     Dates: start: 20050302
  2. INSULIN [Concomitant]
  3. MYCOPHENOLATE MOFETIL [Suspect]
     Indication: RENAL TRANSPLANT
     Dosage: 1000 MG, BID
     Route: 048
     Dates: start: 20050302, end: 20050909
  4. PREDNISONE [Suspect]
     Indication: RENAL TRANSPLANT
     Dosage: UNK, UNK
     Route: 048
     Dates: start: 20050302
  5. PLAVIX [Concomitant]
     Dates: start: 20050306
  6. NORVASC [Concomitant]
     Dates: start: 20050306
  7. XANAX [Concomitant]
     Dates: start: 20050328
  8. CALCITRIOL [Concomitant]
     Dates: start: 20050306
  9. CARDURA [Concomitant]
     Dates: start: 20050306
  10. LUNESTA [Concomitant]
     Dates: start: 20050815
  11. PREVACID [Concomitant]
     Dates: start: 20050517
  12. AMLODIPINE [Concomitant]
     Dates: start: 20050316
  13. CLOTRIMAZOLE [Concomitant]
     Dates: start: 20050316
  14. METOPROLOL [Concomitant]
     Dates: start: 20050316
  15. SEPTRA [Concomitant]
     Dates: start: 20050316
  16. GABAPENTIN [Concomitant]
     Dosage: UNK, UNK
     Dates: start: 20050316

REACTIONS (2)
  - INCISION SITE COMPLICATION [None]
  - URINARY RETENTION [None]
